FAERS Safety Report 24607247 (Version 1)
Quarter: 2024Q4

REPORT INFORMATION
  Report Type: Report from Study
  Country: CZ (occurrence: CZ)
  Receive Date: 20241112
  Receipt Date: 20241112
  Transmission Date: 20250114
  Serious: Yes (Hospitalization)
  Sender: TEVA
  Company Number: CZ-TEVA-VS-3262394

PATIENT
  Age: 70 Year
  Sex: Male
  Weight: 68 kg

DRUGS (22)
  1. VINCRISTINE [Suspect]
     Active Substance: VINCRISTINE
     Indication: Diffuse large B-cell lymphoma stage IV
     Dosage: DOSAGE TEXT: 1.4 MILLIGRAM/SQ. METER, 1 EVERY 3 WEEKS/DATE OF LAST DOSE PRIOR TO EVENT: 16MAY2022
     Route: 042
     Dates: start: 20220516, end: 20220516
  2. VINCRISTINE [Suspect]
     Active Substance: VINCRISTINE
     Indication: Diffuse large B-cell lymphoma stage IV
     Dosage: DOSAGE TEXT: 1.4 MILLIGRAM/SQ. METER, 1 EVERY 3 WEEKS/DATE OF LAST DOSE PRIOR TO EVENT: 16MAY2022
     Route: 042
     Dates: start: 20220610, end: 20220610
  3. RITUXIMAB [Suspect]
     Active Substance: RITUXIMAB
     Indication: Diffuse large B-cell lymphoma stage IV
     Dosage: DOSAGE TEXT: 375 MG/M2 1 EVERY 3 WEEK
     Route: 042
     Dates: start: 20220516, end: 20220516
  4. RITUXIMAB [Suspect]
     Active Substance: RITUXIMAB
     Indication: Diffuse large B-cell lymphoma stage IV
     Dosage: DOSAGE TEXT: 375 MG/M2 1 EVERY 3 WEEK
     Route: 042
     Dates: start: 20220610, end: 20220610
  5. METHYLPREDNISOLONE [Suspect]
     Active Substance: METHYLPREDNISOLONE
     Indication: Diffuse large B-cell lymphoma stage IV
     Dosage: SOLUTION FOR INJECTION/INFUSION
     Route: 042
     Dates: start: 20220516, end: 20220516
  6. DOXORUBICIN [Suspect]
     Active Substance: DOXORUBICIN
     Indication: Diffuse large B-cell lymphoma stage IV
     Dosage: C1D1;
     Route: 042
     Dates: start: 20220516, end: 20220516
  7. DOXORUBICIN [Suspect]
     Active Substance: DOXORUBICIN
     Indication: Diffuse large B-cell lymphoma stage IV
     Route: 042
     Dates: start: 20220610, end: 20220610
  8. PREDNISONE [Suspect]
     Active Substance: PREDNISONE
     Indication: Diffuse large B-cell lymphoma stage IV
     Route: 048
     Dates: start: 20220517, end: 20220520
  9. CYCLOPHOSPHAMIDE [Suspect]
     Active Substance: CYCLOPHOSPHAMIDE
     Indication: Diffuse large B-cell lymphoma stage IV
     Dosage: DOSAGE TEXT: 750 MG/M2 1 EVERY 3 WEEK
     Route: 042
     Dates: start: 20220516, end: 20220516
  10. CYCLOPHOSPHAMIDE [Suspect]
     Active Substance: CYCLOPHOSPHAMIDE
     Indication: Diffuse large B-cell lymphoma stage IV
     Dosage: DOSAGE TEXT: 750 MG/M2 1 EVERY 3 WEEK
     Route: 042
     Dates: start: 20220610, end: 20220610
  11. ONDANSETRON [Concomitant]
     Active Substance: ONDANSETRON
     Indication: Product used for unknown indication
     Dates: start: 20220610, end: 20220610
  12. PREDNISONE [Concomitant]
     Active Substance: PREDNISONE
     Indication: Product used for unknown indication
     Route: 048
     Dates: start: 20220501, end: 20220604
  13. ACLIDINIUM BROMIDE\FORMOTEROL FUMARATE [Concomitant]
     Active Substance: ACLIDINIUM BROMIDE\FORMOTEROL FUMARATE
     Indication: Product used for unknown indication
     Dates: start: 20220424
  14. METFORMIN HYDROCHLORIDE [Concomitant]
     Active Substance: METFORMIN HYDROCHLORIDE
     Indication: Product used for unknown indication
     Dates: start: 2015
  15. BISULEPIN [Concomitant]
     Active Substance: BISULEPIN
     Indication: Product used for unknown indication
     Route: 042
     Dates: start: 20220531, end: 20220531
  16. TONANDA [Concomitant]
     Indication: Product used for unknown indication
     Dates: start: 2015
  17. AMOXICILLIN TRIHYDRATE [Concomitant]
     Active Substance: AMOXICILLIN
     Indication: Product used for unknown indication
     Dates: start: 20220501
  18. AMINOPHYLLINE [Concomitant]
     Active Substance: AMINOPHYLLINE
     Indication: Product used for unknown indication
     Dates: start: 2015
  19. CONTROLOC [Concomitant]
     Active Substance: PANTOPRAZOLE SODIUM
     Indication: Product used for unknown indication
     Dates: start: 20220424
  20. CONTROLOC [Concomitant]
     Active Substance: PANTOPRAZOLE SODIUM
     Indication: Product used for unknown indication
     Dates: start: 20220516, end: 20220610
  21. DIGOXIN [Concomitant]
     Active Substance: DIGOXIN
     Indication: Product used for unknown indication
     Dates: start: 2017
  22. Paralen [Concomitant]
     Indication: Product used for unknown indication
     Route: 048
     Dates: start: 20220531, end: 20220531

REACTIONS (1)
  - Cytokine release syndrome [Recovered/Resolved]

NARRATIVE: CASE EVENT DATE: 20220606
